FAERS Safety Report 4741557-0 (Version None)
Quarter: 2005Q3

REPORT INFORMATION
  Report Type: 
  Country: None (occurrence: None)
  Receive Date: 20050810
  Receipt Date: 20050516
  Transmission Date: 20060218
  Serious: Yes (Other)
  Sender: FDA-Public Use
  Company Number: GB-ABBOTT-05P-167-0300650-00

PATIENT
  Age: 34 Year
  Sex: Female
  Weight: 107.5 kg

DRUGS (4)
  1. REDUCTIL 10MG [Suspect]
     Indication: BODY MASS INDEX INCREASED
     Route: 048
     Dates: start: 20050401, end: 20050429
  2. REDUCTIL 10MG [Suspect]
     Indication: OBESITY
  3. EUGYNON [Concomitant]
     Indication: CONTRACEPTION
     Route: 048
     Dates: start: 20040909
  4. ACETAMINOPHEN W/ CODEINE [Concomitant]
     Indication: BACK PAIN
     Route: 048
     Dates: start: 20040202

REACTIONS (6)
  - BODY TEMPERATURE INCREASED [None]
  - FLUSHING [None]
  - GLOMERULONEPHRITIS [None]
  - HAEMATURIA [None]
  - NAUSEA [None]
  - PROTEINURIA [None]
